FAERS Safety Report 11564887 (Version 1)
Quarter: 2015Q3

REPORT INFORMATION
  Report Type: Other
  Country: GB (occurrence: CA)
  Receive Date: 20150928
  Receipt Date: 20150928
  Transmission Date: 20151125
  Serious: Yes (Life-Threatening, Hospitalization, Other)
  Sender: FDA-Public Use
  Company Number: CA-CLARIS PHARMASERVICES-1042370

PATIENT
  Age: 40 Year
  Sex: Male

DRUGS (1)
  1. NOREPINEPHRINE BITARTRATE. [Suspect]
     Active Substance: NOREPINEPHRINE BITARTRATE
     Indication: RESPIRATORY FAILURE
     Route: 042

REACTIONS (2)
  - Hypertension [Recovered/Resolved]
  - Cardiac arrest [Recovered/Resolved]
